FAERS Safety Report 7050624-0 (Version None)
Quarter: 2010Q4

REPORT INFORMATION
  Report Type: 
  Country: None (occurrence: None)
  Receive Date: 20101018
  Receipt Date: 20101005
  Transmission Date: 20110411
  Serious: Yes (Other)
  Sender: FDA-Public Use
  Company Number: BR-GENENTECH-307885

PATIENT
  Sex: Male

DRUGS (1)
  1. XOLAIR [Suspect]
     Indication: ASTHMA
     Route: 058

REACTIONS (4)
  - ANAPHYLACTIC REACTION [None]
  - HYPERAEMIA [None]
  - HYPERSENSITIVITY [None]
  - HYPOTENSION [None]
